FAERS Safety Report 24724519 (Version 1)
Quarter: 2024Q4

REPORT INFORMATION
  Report Type: Spontaneous
  Country: US (occurrence: US)
  Receive Date: 20241212
  Receipt Date: 20241212
  Transmission Date: 20250114
  Serious: No
  Sender: UPSHER SMITH LABORATORIES
  Company Number: US-UPSHER-SMITH LABORATORIES, LLC-2023USL01012

PATIENT
  Sex: Female

DRUGS (1)
  1. KLOR-CON M [Suspect]
     Active Substance: POTASSIUM CHLORIDE
     Dosage: UNK
     Route: 048

REACTIONS (5)
  - Foreign body in throat [Recovered/Resolved]
  - Foreign body in gastrointestinal tract [Recovered/Resolved]
  - Retching [Recovered/Resolved]
  - Foreign body in mouth [Recovered/Resolved]
  - Product use complaint [Recovered/Resolved]
